FAERS Safety Report 7239952-3 (Version None)
Quarter: 2011Q1

REPORT INFORMATION
  Report Type: 
  Country: None (occurrence: None)
  Receive Date: 20110124
  Receipt Date: 20110114
  Transmission Date: 20110831
  Serious: Yes (Hospitalization)
  Sender: FDA-Public Use
  Company Number: 185662

PATIENT
  Age: 67 Year
  Sex: Female

DRUGS (1)
  1. AVONEX [Suspect]
     Indication: MULTIPLE SCLEROSIS
     Route: 030
     Dates: start: 20020328

REACTIONS (7)
  - FALL [None]
  - ADVERSE DRUG REACTION [None]
  - MOBILITY DECREASED [None]
  - FIBULA FRACTURE [None]
  - VOMITING [None]
  - TIBIA FRACTURE [None]
  - DIZZINESS [None]
